FAERS Safety Report 15317128 (Version 1)
Quarter: 2018Q3

REPORT INFORMATION
  Report Type: Report from Study
  Country: US (occurrence: BR)
  Receive Date: 20180824
  Receipt Date: 20180824
  Transmission Date: 20181010
  Serious: Yes (Other)
  Sender: FDA-Public Use
  Company Number: US-SUNOVION-2018SUN003303

PATIENT
  Sex: Female
  Weight: 53.97 kg

DRUGS (1)
  1. INDACATEROL AND GLYCOPYRROLATE [Suspect]
     Active Substance: GLYCOPYRROLATE\INDACATEROL MALEATE
     Indication: ASTHMA
     Dosage: 1 DF (50 UG OF GLYCOPYRRONIUM BROMIDE AND 110 UG OF INDACATEROL), QD
     Route: 055
     Dates: start: 201801, end: 201801

REACTIONS (3)
  - Drug intolerance [Unknown]
  - Urinary tract infection [Recovered/Resolved]
  - Product use in unapproved indication [Unknown]
